FAERS Safety Report 9818830 (Version 1)
Quarter: 2014Q1

REPORT INFORMATION
  Report Type: Spontaneous
  Country: US (occurrence: US)
  Receive Date: 20140115
  Receipt Date: 20140115
  Transmission Date: 20141002
  Serious: No
  Sender: FDA-Public Use
  Company Number: US-PFIZER INC-2014010509

PATIENT
  Sex: Male

DRUGS (2)
  1. JUNIOR STRENGTH ADVIL [Suspect]
     Indication: HEADACHE
     Dosage: UNK
     Route: 048
  2. JUNIOR STRENGTH ADVIL [Suspect]
     Indication: MALAISE

REACTIONS (3)
  - Urticaria [Unknown]
  - Swelling face [Unknown]
  - Eye swelling [Unknown]
